FAERS Safety Report 18119797 (Version 1)
Quarter: 2020Q3

REPORT INFORMATION
  Report Type: Report from Study
  Country: GT (occurrence: GT)
  Receive Date: 20200806
  Receipt Date: 20200806
  Transmission Date: 20201103
  Serious: Yes (Other)
  Sender: FDA-Public Use
  Company Number: NVSC2020GT217026

PATIENT
  Age: 76 Year
  Sex: Female

DRUGS (1)
  1. VYMADA [Suspect]
     Active Substance: SACUBITRIL\VALSARTAN
     Indication: PRODUCT USED FOR UNKNOWN INDICATION
     Dosage: 50 MG, BID (HALF IN THE MORNING AND HALF ATA NIGHT)
     Route: 065
     Dates: start: 202001

REACTIONS (4)
  - Infarction [Unknown]
  - Wrong technique in product usage process [Unknown]
  - Swelling [Unknown]
  - Fluid retention [Unknown]
